FAERS Safety Report 7581563-4 (Version None)
Quarter: 2011Q2

REPORT INFORMATION
  Report Type: 
  Country: None (occurrence: None)
  Receive Date: 20110629
  Receipt Date: 20110623
  Transmission Date: 20111010
  Serious: Yes (Other)
  Sender: FDA-Public Use
  Company Number: PHEH2008US06596

PATIENT
  Sex: Male

DRUGS (9)
  1. FOSAMAX [Suspect]
     Dosage: UNK
     Dates: start: 20010101, end: 20020201
  2. AREDIA [Suspect]
     Indication: OSTEOPOROSIS PROPHYLAXIS
     Dosage: UNK
     Dates: start: 20010101, end: 20020101
  3. LISINOPRIL [Concomitant]
  4. LASIX [Concomitant]
  5. LIPITOR [Concomitant]
  6. ASPIRIN [Concomitant]
  7. ZOMETA [Suspect]
     Indication: OSTEOPOROSIS
     Dosage: UNK
  8. TOPROL-XL [Concomitant]
  9. PLAVIX [Concomitant]

REACTIONS (7)
  - INJURY [None]
  - ABSCESS [None]
  - DECREASED INTEREST [None]
  - PAIN [None]
  - OSTEONECROSIS OF JAW [None]
  - ANXIETY [None]
  - ORAL CAVITY FISTULA [None]
